FAERS Safety Report 7268320-3 (Version None)
Quarter: 2011Q1

REPORT INFORMATION
  Report Type: 
  Country: None (occurrence: None)
  Receive Date: 20110201
  Receipt Date: 20110119
  Transmission Date: 20110831
  Serious: Yes (Death, Hospitalization)
  Sender: FDA-Public Use
  Company Number: AU-WATSON-2011-01162

PATIENT
  Age: 74 Year
  Sex: Male

DRUGS (7)
  1. MIRTAZAPINE [Suspect]
     Indication: MAJOR DEPRESSION
     Dosage: 30 MG, DAILY
  2. LORAZEPAM [Suspect]
     Indication: AGITATION
     Dosage: UNK
  3. QUETIAPINE [Suspect]
     Indication: MAJOR DEPRESSION
     Dosage: 25 MG, BID
  4. DONEPEZIL HCL [Suspect]
     Indication: AGITATION
     Dosage: 5 MG, UNK
  5. OLANZAPINE [Suspect]
     Dosage: 2.5 MG, BID
  6. MIRTAZAPINE [Suspect]
     Dosage: 15 MG, DAILY
  7. OLANZAPINE [Suspect]
     Indication: MAJOR DEPRESSION
     Dosage: 2.5 MG, DAILY

REACTIONS (4)
  - CEREBRAL HAEMORRHAGE [None]
  - NEUROLEPTIC MALIGNANT SYNDROME [None]
  - PARKINSONISM [None]
  - HALLUCINATION [None]
